FAERS Safety Report 7591464-3 (Version None)
Quarter: 2011Q3

REPORT INFORMATION
  Report Type: 
  Country: None (occurrence: None)
  Receive Date: 20110701
  Receipt Date: 20110701
  Transmission Date: 20111222
  Serious: Yes (Disabling)
  Sender: FDA-Public Use
  Company Number: None

PATIENT
  Age: 65 Year
  Sex: Female
  Weight: 54.4316 kg

DRUGS (1)
  1. SIMVASTATIN [Suspect]
     Indication: MYOCARDIAL INFARCTION
     Dosage: 1 DAILY PO 1/2 MONTH
     Route: 048
     Dates: start: 20100929, end: 20110614

REACTIONS (5)
  - MYALGIA [None]
  - ASTHENIA [None]
  - AMNESIA [None]
  - INSOMNIA [None]
  - COGNITIVE DISORDER [None]
